FAERS Safety Report 8136101-4 (Version None)
Quarter: 2012Q1

REPORT INFORMATION
  Report Type: 
  Country: None (occurrence: None)
  Receive Date: 20120214
  Receipt Date: 20111215
  Transmission Date: 20120608
  Serious: No
  Sender: FDA-Public Use
  Company Number: US-COVIDIEN/TYCO HEALTHCARE/MALLINCKRODT-T201102755

PATIENT
  Sex: Male
  Weight: 83.9 kg

DRUGS (9)
  1. FENTANYL-100 [Suspect]
     Indication: PAIN
     Dosage: 100 UG/HR, ONE FTS Q 3 DAYS
     Route: 062
     Dates: start: 20111118, end: 20111124
  2. OXYCODONE HCL [Concomitant]
     Indication: BREAKTHROUGH PAIN
     Dosage: 30 MG, PRN
     Route: 048
     Dates: start: 20111118
  3. CYMBALTA [Concomitant]
     Indication: FIBROMYALGIA
     Dosage: 1 TABLET EVERY DAY
     Route: 048
  4. INDOMETHACIN [Concomitant]
     Indication: GOUT
     Dosage: UNK
  5. CYMBALTA [Concomitant]
     Indication: DEPRESSION
  6. AMLODIPINE [Concomitant]
     Indication: HYPERTENSION
     Route: 048
  7. OMEPRAZOLE [Concomitant]
     Indication: GASTROOESOPHAGEAL REFLUX DISEASE
     Dosage: UNK
  8. AMBIEN [Concomitant]
     Indication: INSOMNIA
     Dosage: 1 TABLET Q BEDTIME
     Route: 048
  9. XANAX [Concomitant]
     Indication: INSOMNIA
     Dosage: 1 TABLET Q BEDTIME
     Route: 048

REACTIONS (2)
  - DRUG INEFFECTIVE [None]
  - BREAKTHROUGH PAIN [None]
